FAERS Safety Report 25891439 (Version 4)
Quarter: 2025Q4

REPORT INFORMATION
  Report Type: Spontaneous
  Country: GB (occurrence: GB)
  Receive Date: 20251007
  Receipt Date: 20251203
  Transmission Date: 20260118
  Serious: Yes (Other)
  Sender: INCYTE
  Company Number: GB-002147023-NVSC2025GB150971

PATIENT
  Age: 83 Year

DRUGS (5)
  1. RUXOLITINIB [Suspect]
     Active Substance: RUXOLITINIB
     Indication: Polycythaemia vera
     Dosage: 20 MG, BID
  2. RUXOLITINIB [Suspect]
     Active Substance: RUXOLITINIB
     Dosage: 25 MG, BID ( FOR 3 MONTHS)
     Route: 065
  3. RUXOLITINIB [Suspect]
     Active Substance: RUXOLITINIB
     Dosage: 10 MG, BID
  4. ACYCLOVIR [Concomitant]
     Active Substance: ACYCLOVIR
     Indication: Product used for unknown indication
     Dosage: 200 MG, TID
     Route: 065
  5. ASPIRIN [Concomitant]
     Active Substance: ASPIRIN
     Indication: Product used for unknown indication
     Dosage: 75 MG, QD
     Route: 065

REACTIONS (11)
  - Basal cell carcinoma [Unknown]
  - Transient ischaemic attack [Recovered/Resolved]
  - Herpes zoster [Recovered/Resolved with Sequelae]
  - Dysplastic naevus [Recovered/Resolved]
  - Weight increased [Unknown]
  - Haematoma [Recovered/Resolved with Sequelae]
  - Fatigue [Unknown]
  - Fall [Recovered/Resolved with Sequelae]
  - Mouth ulceration [Unknown]
  - Leukocytosis [Unknown]
  - Drug ineffective [Unknown]
